FAERS Safety Report 9680075 (Version 1)
Quarter: 2013Q4

REPORT INFORMATION
  Report Type: Spontaneous
  Country: GR (occurrence: GR)
  Receive Date: 20131111
  Receipt Date: 20131111
  Transmission Date: 20140711
  Serious: Yes (Other)
  Sender: FDA-Public Use
  Company Number: GR-ROCHE-1300762

PATIENT
  Age: 46 Year
  Sex: Female

DRUGS (1)
  1. XOLAIR [Suspect]
     Indication: URTICARIA
     Route: 065

REACTIONS (3)
  - Hypoaesthesia oral [Recovered/Resolved]
  - Rash generalised [Recovered/Resolved]
  - Off label use [Unknown]
